FAERS Safety Report 9865917 (Version 1)
Quarter: 2014Q1

REPORT INFORMATION
  Report Type: Spontaneous
  Country: US (occurrence: US)
  Receive Date: 20140203
  Receipt Date: 20140203
  Transmission Date: 20141002
  Serious: No
  Sender: FDA-Public Use
  Company Number: US-ALLERGAN-1313342US

PATIENT
  Age: 56 Year
  Sex: Female

DRUGS (3)
  1. RESTASIS [Suspect]
     Indication: DRY EYE
     Dosage: 2 GTT, BID
     Route: 047
     Dates: end: 201308
  2. PATADAY [Concomitant]
     Indication: HYPERSENSITIVITY
  3. PATANOL S [Concomitant]
     Indication: HYPERSENSITIVITY

REACTIONS (1)
  - Blepharospasm [Recovering/Resolving]
